FAERS Safety Report 16236154 (Version 3)
Quarter: 2020Q1

REPORT INFORMATION
  Report Type: Report from Study
  Country: None (occurrence: US)
  Receive Date: 20190425
  Receipt Date: 20200206
  Transmission Date: 20200409
  Serious: Yes (Hospitalization, Other)
  Sender: FDA-Public Use
  Company Number: US-ABBVIE-19K-163-2755265-00

PATIENT
  Age: 69 Year
  Sex: Female
  Weight: 60.84 kg

DRUGS (8)
  1. MORPHINE [Suspect]
     Active Substance: MORPHINE
     Indication: PAIN
     Route: 065
  2. HUMIRA [Suspect]
     Active Substance: ADALIMUMAB
     Indication: CROHN^S DISEASE
     Route: 058
     Dates: start: 201902, end: 201911
  3. LEVOTHYROXINE. [Concomitant]
     Active Substance: LEVOTHYROXINE
     Indication: RADIOTHERAPY TO THYROID
     Route: 065
  4. XANAX [Concomitant]
     Active Substance: ALPRAZOLAM
     Indication: SLEEP DISORDER
  5. BABY ASPIRIN [Concomitant]
     Active Substance: ASPIRIN
     Indication: PRODUCT USED FOR UNKNOWN INDICATION
     Route: 065
  6. HUMIRA [Suspect]
     Active Substance: ADALIMUMAB
     Indication: PSORIASIS
     Route: 058
     Dates: start: 201912, end: 20200204
  7. HUMIRA [Suspect]
     Active Substance: ADALIMUMAB
     Route: 058
  8. SYNTHROID [Concomitant]
     Active Substance: LEVOTHYROXINE SODIUM
     Indication: HYPOTHYROIDISM

REACTIONS (15)
  - Intentional product misuse [Not Recovered/Not Resolved]
  - Somnolence [Not Recovered/Not Resolved]
  - Stress [Not Recovered/Not Resolved]
  - Pain [Recovering/Resolving]
  - Intestinal obstruction [Recovering/Resolving]
  - Crohn^s disease [Not Recovered/Not Resolved]
  - Gastrointestinal obstruction [Not Recovered/Not Resolved]
  - Constipation [Not Recovered/Not Resolved]
  - Abdominal adhesions [Not Recovered/Not Resolved]
  - Internal haemorrhage [Unknown]
  - Hypertension [Recovering/Resolving]
  - Haemoglobin decreased [Recovering/Resolving]
  - Melaena [Recovering/Resolving]
  - Gastrointestinal oedema [Not Recovered/Not Resolved]
  - Therapeutic product effect delayed [Recovering/Resolving]

NARRATIVE: CASE EVENT DATE: 2019
